FAERS Safety Report 8003560-7 (Version None)
Quarter: 2011Q4

REPORT INFORMATION
  Report Type: 
  Country: None (occurrence: None)
  Receive Date: 20111222
  Receipt Date: 20111219
  Transmission Date: 20120403
  Serious: Yes (Hospitalization)
  Sender: FDA-Public Use
  Company Number: US-US-EMD SERONO, INC.-7093440

PATIENT
  Sex: Female

DRUGS (3)
  1. REBIF [Suspect]
     Indication: MULTIPLE SCLEROSIS
     Route: 058
     Dates: start: 20101229, end: 20110901
  2. ACETAMINOPHEN [Concomitant]
     Indication: PREMEDICATION
  3. REBIF [Suspect]
     Route: 058
     Dates: start: 20111101

REACTIONS (6)
  - INJECTION SITE ERYTHEMA [None]
  - HYPERSENSITIVITY [None]
  - DIABETES MELLITUS [None]
  - MEMORY IMPAIRMENT [None]
  - INAPPROPRIATE SCHEDULE OF DRUG ADMINISTRATION [None]
  - HAEMORRHAGIC STROKE [None]
